FAERS Safety Report 25127136 (Version 3)
Quarter: 2025Q4

REPORT INFORMATION
  Report Type: Spontaneous
  Country: US (occurrence: None)
  Receive Date: 20250327
  Receipt Date: 20251217
  Transmission Date: 20260117
  Serious: No
  Sender: UCB
  Company Number: US-UCBSA-2025008478

PATIENT
  Age: 52 Year

DRUGS (3)
  1. BIMZELX [Suspect]
     Active Substance: BIMEKIZUMAB-BKZX
     Indication: Dermatitis
     Dosage: 320 MILLIGRAM, EV 4 WEEKS, AT WEEKS 4, 8, 12, AND 16 THEN 2 PENS EVERY 8 WEEKS THEREAFTER
  2. BIMZELX [Suspect]
     Active Substance: BIMEKIZUMAB-BKZX
     Indication: Off label use
     Dosage: 320 MILLIGRAM, EV 8 WEEKS, AT WEEKS 4, 8, 12, AND 16 THEN 2 PENS EVERY 8 WEEKS THEREAFTER
  3. TASIGNA [Suspect]
     Active Substance: NILOTINIB
     Indication: Product used for unknown indication
     Dosage: UNK

REACTIONS (2)
  - Psoriasis [Recovered/Resolved]
  - Off label use [Unknown]
